FAERS Safety Report 5823801-1 (Version None)
Quarter: 2008Q3

REPORT INFORMATION
  Report Type: 
  Country: None (occurrence: None)
  Receive Date: 20080725
  Receipt Date: 20080718
  Transmission Date: 20090109
  Serious: Yes (Other)
  Sender: FDA-Public Use
  Company Number: US-GILEAD-2008-0017353

PATIENT
  Sex: Female
  Weight: 74.91 kg

DRUGS (15)
  1. LETAIRIS [Suspect]
     Indication: PULMONARY ARTERIAL HYPERTENSION
     Route: 048
     Dates: start: 20080401, end: 20080428
  2. ESOMEPRAZOLE MAGNESIUM [Concomitant]
     Route: 048
  3. COUMADIN [Concomitant]
     Route: 048
  4. TRIMETHOPRIM + SULFAMETHOXAZOLE [Concomitant]
     Dosage: 40MG-200MG/ML ORAL SUSP, 5CC
     Route: 048
  5. XALATAN 0.005% EYE DROPS [Concomitant]
     Dosage: 0.005% EYE DROPS; I GTT TO Q AFFECTED EYE QD
     Route: 047
  6. SYNTHROID [Concomitant]
     Route: 048
  7. MURO 128 5% EYE DROPS [Concomitant]
     Dosage: 5% EYE DROPS
     Route: 047
  8. FLOVENT HFA [Concomitant]
     Dosage: 110 MCG/ACTUATION
     Route: 055
  9. KLOR-CON M20 [Concomitant]
     Route: 048
  10. TOPROL-XL [Concomitant]
     Dosage: 50 MG
     Route: 048
  11. FUROSEMIDE [Concomitant]
     Route: 048
  12. RITUXAN [Concomitant]
  13. MACROBID [Concomitant]
     Route: 048
  14. XOPENEX HFA [Concomitant]
     Dosage: 2 PUFFS BID
  15. OXYGEN [Concomitant]
     Route: 055

REACTIONS (2)
  - CONDITION AGGRAVATED [None]
  - DYSPNOEA [None]
